FAERS Safety Report 4987559-0 (Version None)
Quarter: 2006Q2

REPORT INFORMATION
  Report Type: 
  Country: None (occurrence: None)
  Receive Date: 20060427
  Receipt Date: 20060427
  Transmission Date: 20061013
  Serious: Yes (Life-Threatening)
  Sender: FDA-Public Use
  Company Number: None

PATIENT
  Sex: Male
  Weight: 88.4514 kg

DRUGS (1)
  1. NASAREL [Suspect]
     Indication: SINUS DISORDER
     Dosage: 2 SQUIRTS IN EACH NOSTRIL 2 TIMES DAILY NOS
     Route: 045
     Dates: start: 20051208, end: 20060115

REACTIONS (1)
  - GRAND MAL CONVULSION [None]
